FAERS Safety Report 18611724 (Version 4)
Quarter: 2021Q1

REPORT INFORMATION
  Report Type: Report from Study
  Country: None (occurrence: DE)
  Receive Date: 20201214
  Receipt Date: 20210202
  Transmission Date: 20210419
  Serious: Yes (Death, Other)
  Sender: FDA-Public Use
  Company Number: DE-ABBVIE-20K-062-3689471-00

PATIENT
  Age: 67 Year
  Sex: Male
  Weight: 87 kg

DRUGS (37)
  1. AMOXICILLIN. [Concomitant]
     Active Substance: AMOXICILLIN
     Indication: PRODUCT USED FOR UNKNOWN INDICATION
     Dates: start: 20150615, end: 20150622
  2. HEPARIN [Concomitant]
     Active Substance: HEPARIN SODIUM
     Indication: PRODUCT USED FOR UNKNOWN INDICATION
     Dosage: 0?1?1
     Dates: start: 20150909, end: 20150909
  3. ROCALTROL [Concomitant]
     Active Substance: CALCITRIOL
     Indication: PRODUCT USED FOR UNKNOWN INDICATION
     Dosage: 1?0?1
     Dates: start: 20151006, end: 201603
  4. DEKRISTOL [Concomitant]
     Active Substance: CHOLECALCIFEROL
     Indication: PRODUCT USED FOR UNKNOWN INDICATION
     Dates: start: 20151006
  5. HARVONI [Concomitant]
     Active Substance: LEDIPASVIR\SOFOSBUVIR
     Indication: PRODUCT USED FOR UNKNOWN INDICATION
     Dosage: 90 MG LEDIPASVIR/ 400 MG SOFOSBU? VIR/TBL. 1 TABL./DIE
  6. VICTOZA [Concomitant]
     Active Substance: LIRAGLUTIDE
     Indication: PRODUCT USED FOR UNKNOWN INDICATION
     Dosage: BEFORE VIEKIRAX?EXV. THERAPY
     Dates: end: 20150526
  7. PANTOPRAZOL [Concomitant]
     Active Substance: PANTOPRAZOLE SODIUM
     Dates: start: 20150817
  8. CLARITHROMYCIN. [Concomitant]
     Active Substance: CLARITHROMYCIN
     Indication: PRODUCT USED FOR UNKNOWN INDICATION
     Dates: start: 20150615, end: 20150622
  9. OXYGEN. [Concomitant]
     Active Substance: OXYGEN
     Indication: PRODUCT USED FOR UNKNOWN INDICATION
     Dosage: THROUGH O2 GLASSES, 2L / MIN
     Dates: start: 20150909, end: 20150914
  10. ADENURIC [Concomitant]
     Active Substance: FEBUXOSTAT
     Indication: PRODUCT USED FOR UNKNOWN INDICATION
     Dosage: 0?1?0
     Dates: start: 201603
  11. RAMIPRIL. [Concomitant]
     Active Substance: RAMIPRIL
     Dosage: 0?1?0
     Dates: start: 20150915
  12. CARVEDILOL. [Concomitant]
     Active Substance: CARVEDILOL
     Indication: CARDIOVASCULAR DISORDER
     Dosage: BEFORE VIEKIRAX?EXV. THERAPY
     Dates: end: 20150526
  13. FURORESE [Concomitant]
     Active Substance: FUROSEMIDE
     Indication: PRODUCT USED FOR UNKNOWN INDICATION
     Dosage: 2?1?0
     Dates: start: 20150909, end: 20150911
  14. FUROSEMID [Concomitant]
     Active Substance: FUROSEMIDE
     Indication: PRODUCT USED FOR UNKNOWN INDICATION
     Dates: start: 20150526, end: 20150628
  15. DARBEPOETIN ALFA [Concomitant]
     Active Substance: DARBEPOETIN ALFA
     Indication: PRODUCT USED FOR UNKNOWN INDICATION
     Dosage: 0.45NG/KG
     Dates: start: 20150526, end: 20150716
  16. FURORESE [Concomitant]
     Active Substance: FUROSEMIDE
     Dosage: 1/4?0?1/4
     Dates: start: 20150912
  17. FERRO?SANOL DUODENAL [Concomitant]
     Active Substance: FERROUS GLYCINE SULFATE
     Indication: PRODUCT USED FOR UNKNOWN INDICATION
     Dosage: 1?0?0 ?STARTED AFTER VIEKIRAX/EXVIERA THERAPY
     Dates: end: 201603
  18. HEPARIN [Concomitant]
     Active Substance: HEPARIN SODIUM
     Dosage: 1?1?1
     Dates: start: 20150910, end: 20150914
  19. PANTOPRAZOL [Concomitant]
     Active Substance: PANTOPRAZOLE SODIUM
     Indication: PRODUCT USED FOR UNKNOWN INDICATION
     Dates: start: 20150526, end: 20150816
  20. POTASSIUM [Concomitant]
     Active Substance: POTASSIUM
     Indication: PRODUCT USED FOR UNKNOWN INDICATION
     Dosage: BASED ON LAB RESULTS
     Dates: start: 20150526, end: 20150615
  21. SALBUTAMOL [Concomitant]
     Active Substance: ALBUTEROL
     Indication: PRODUCT USED FOR UNKNOWN INDICATION
     Dosage: 0?1?0
     Dates: start: 20150909, end: 20150909
  22. ROCALTROL [Concomitant]
     Active Substance: CALCITRIOL
     Dates: start: 201603
  23. BISOPROLOL RATIOPHARM [Concomitant]
     Active Substance: BISOPROLOL
     Indication: PRODUCT USED FOR UNKNOWN INDICATION
     Dates: start: 20061101
  24. RAMIPRIL. [Concomitant]
     Active Substance: RAMIPRIL
     Indication: CARDIOVASCULAR DISORDER
     Dosage: BEFORE VIEKIRAX?EXV. THERAPY
     Dates: end: 20150526
  25. AMLODIPIN [Concomitant]
     Active Substance: AMLODIPINE BESYLATE
     Indication: CARDIOVASCULAR DISORDER
     Dosage: BEFORE VIEKIRAX?EXV. THERAPY
     Dates: end: 20150914
  26. FUROSEMID [Concomitant]
     Active Substance: FUROSEMIDE
     Dates: start: 20150629, end: 20150908
  27. THIAMAZOL [Concomitant]
     Active Substance: METHIMAZOLE
     Indication: PRODUCT USED FOR UNKNOWN INDICATION
     Dates: start: 20150526, end: 20150615
  28. ATROVENT [Concomitant]
     Active Substance: IPRATROPIUM BROMIDE
     Dosage: 1?1?1
     Dates: start: 20150910, end: 20150914
  29. CALCET [Concomitant]
     Indication: PRODUCT USED FOR UNKNOWN INDICATION
     Dosage: 0?2?0
     Dates: start: 20151217
  30. VIEKIRAX [Suspect]
     Active Substance: OMBITASVIR\PARITAPREVIR\RITONAVIR
     Indication: CHRONIC HEPATITIS C
     Dosage: OMBITASVIR 12.5MG/PARITAPREVIR 75 MG/RITONAVIR 50 MG, 2 TABLETS ONCE DAILY
     Route: 048
     Dates: start: 20150318, end: 20150610
  31. EXVIERA [Suspect]
     Active Substance: DASABUVIR
     Indication: CHRONIC HEPATITIS C
     Route: 048
     Dates: start: 20150318, end: 20150610
  32. CEFTRIAXON [Concomitant]
     Active Substance: CEFTRIAXONE
     Indication: PRODUCT USED FOR UNKNOWN INDICATION
     Dosage: 1?0?0
     Route: 042
     Dates: start: 20150910, end: 20150915
  33. HEPARIN [Concomitant]
     Active Substance: HEPARIN SODIUM
  34. ATROVENT [Concomitant]
     Active Substance: IPRATROPIUM BROMIDE
     Indication: PRODUCT USED FOR UNKNOWN INDICATION
     Dosage: 0?1?0
     Dates: start: 20150909, end: 20150909
  35. SALBUTAMOL [Concomitant]
     Active Substance: ALBUTEROL
     Dosage: 1?1?1
     Dates: start: 20150910, end: 20150914
  36. SPIRIVA [Concomitant]
     Active Substance: TIOTROPIUM BROMIDE MONOHYDRATE
     Indication: PRODUCT USED FOR UNKNOWN INDICATION
     Dosage: 2?0?0
     Dates: start: 20150911, end: 20150921
  37. DAKLINZA [Concomitant]
     Active Substance: DACLATASVIR
     Indication: PRODUCT USED FOR UNKNOWN INDICATION
     Dosage: 30 MG/TBL ODER?60 MG/TBL?60 MG/DIE

REACTIONS (42)
  - General physical health deterioration [Fatal]
  - Neutrophil count increased [Not Recovered/Not Resolved]
  - Eosinophil count decreased [Not Recovered/Not Resolved]
  - Platelet count increased [Not Recovered/Not Resolved]
  - Infection [Unknown]
  - Procalcitonin increased [Not Recovered/Not Resolved]
  - Red blood cell count decreased [Not Recovered/Not Resolved]
  - Vascular encephalopathy [Unknown]
  - Monocyte count increased [Not Recovered/Not Resolved]
  - Pulmonary mass [Unknown]
  - Glomerular filtration rate decreased [Unknown]
  - Refusal of treatment by patient [Fatal]
  - End stage renal disease [Fatal]
  - Systemic inflammatory response syndrome [Unknown]
  - Left ventricular dilatation [Unknown]
  - Mitral valve disease [Unknown]
  - Gamma-glutamyltransferase increased [Unknown]
  - Renal cyst [Unknown]
  - Mediastinal effusion [Unknown]
  - Sepsis [Unknown]
  - Basophil count increased [Unknown]
  - Bundle branch block [Unknown]
  - Renal artery stenosis [Unknown]
  - Blood alkaline phosphatase increased [Unknown]
  - C-reactive protein increased [Not Recovered/Not Resolved]
  - Chronic kidney disease [Unknown]
  - Septic shock [Unknown]
  - White blood cell count increased [Not Recovered/Not Resolved]
  - Cerebral calcification [Unknown]
  - Blood creatinine increased [Unknown]
  - Metastatic lymphoma [Unknown]
  - Myocardial infarction [Unknown]
  - Lymphocyte count decreased [Not Recovered/Not Resolved]
  - Haematocrit decreased [Not Recovered/Not Resolved]
  - Lung carcinoma cell type unspecified stage IV [Fatal]
  - Cerebral infarction [Unknown]
  - Pleural effusion [Unknown]
  - Cholelithiasis [Unknown]
  - Haemoglobin decreased [Not Recovered/Not Resolved]
  - Blood bilirubin decreased [Unknown]
  - Ejection fraction decreased [Unknown]
  - Hypokinesia [Unknown]

NARRATIVE: CASE EVENT DATE: 201701
